FAERS Safety Report 9701918 (Version 1)
Quarter: 2013Q4

REPORT INFORMATION
  Report Type: Spontaneous
  Country: US (occurrence: None)
  Receive Date: 20131120
  Receipt Date: 20131120
  Transmission Date: 20140711
  Serious: No
  Sender: FDA-Public Use
  Company Number: None

PATIENT
  Sex: Female
  Weight: 85.28 kg

DRUGS (1)
  1. PARLODEL [Suspect]
     Indication: PROLACTINOMA
     Dosage: OD, ORAL?28 YRS AGO
     Route: 048

REACTIONS (4)
  - Asthenia [None]
  - Nausea [None]
  - Fatigue [None]
  - Headache [None]
